FAERS Safety Report 8458195-9 (Version None)
Quarter: 2012Q2

REPORT INFORMATION
  Report Type: 
  Country: None (occurrence: None)
  Receive Date: 20120615
  Receipt Date: 20120611
  Transmission Date: 20120825
  Serious: Yes (Disabling, Other)
  Sender: FDA-Public Use
  Company Number: AUR-APL-2012-00462

PATIENT
  Age: 68 Year
  Sex: Male
  Weight: 81.64 kg

DRUGS (6)
  1. MIRTAZAPINE [Suspect]
     Indication: DEPRESSION
     Dosage: 15 MG (15 MG, 1 IN 1 D)
     Dates: start: 20111230, end: 20111231
  2. CITALOPRAM HYDROBROMIDE [Concomitant]
  3. LOCERYL (AMOLFINE) [Concomitant]
  4. SIMVASTATIN [Concomitant]
  5. ASACOL [Concomitant]
  6. TIMOLOL MALEAATE (TIMOLOL MALEATE) [Concomitant]

REACTIONS (7)
  - DIZZINESS [None]
  - HEADACHE [None]
  - POLLAKIURIA [None]
  - URINARY TRACT DISORDER [None]
  - MUSCLE TWITCHING [None]
  - NOCTURIA [None]
  - DYSURIA [None]
